FAERS Safety Report 9260487 (Version 2)
Quarter: 2013Q4

REPORT INFORMATION
  Report Type: Spontaneous
  Country: FR (occurrence: FR)
  Receive Date: 20130429
  Receipt Date: 20131023
  Transmission Date: 20140711
  Serious: Yes (Hospitalization, Other)
  Sender: FDA-Public Use
  Company Number: FR-MERCK-1304FRA013774

PATIENT
  Age: 68 Year
  Sex: Female
  Weight: 69 kg

DRUGS (5)
  1. VICTRELIS [Suspect]
     Indication: HEPATITIS C
     Dosage: 800 MG, TID
     Dates: start: 20110726, end: 20111013
  2. VIRAFERONPEG [Suspect]
     Indication: HEPATITIS C
     Dosage: 100 MICROGRAM, QW
     Dates: start: 20110629, end: 20111013
  3. RIBAVIRIN [Suspect]
     Indication: HEPATITIS C
     Dosage: 1000 MG, QD
     Dates: start: 20110629, end: 20111013
  4. AMLOR [Concomitant]
     Indication: HYPERTENSION
     Dosage: 1 DF, UNK
  5. PLAVIX [Concomitant]
     Indication: HYPERTENSION
     Dosage: 1 UNK, UNK

REACTIONS (1)
  - Hepatocellular carcinoma [Recovered/Resolved]
